FAERS Safety Report 14844280 (Version 1)
Quarter: 2018Q2

REPORT INFORMATION
  Report Type: Spontaneous
  Country: NL (occurrence: NL)
  Receive Date: 20180503
  Receipt Date: 20180503
  Transmission Date: 20180711
  Serious: Yes (Other)
  Sender: FDA-Public Use
  Company Number: NL-BAUSCH-BL-2018-012421

PATIENT
  Age: 57 Year
  Sex: Female
  Weight: 62 kg

DRUGS (2)
  1. LOCOID [Suspect]
     Active Substance: HYDROCORTISONE BUTYRATE
     Indication: HYPERSENSITIVITY
     Dosage: AS REQUIRED
     Route: 065
     Dates: start: 19740301, end: 20150320
  2. LOCOID [Suspect]
     Active Substance: HYDROCORTISONE BUTYRATE
     Indication: ECZEMA

REACTIONS (1)
  - Steroid withdrawal syndrome [Recovered/Resolved with Sequelae]

NARRATIVE: CASE EVENT DATE: 20150320
